FAERS Safety Report 17659356 (Version 1)
Quarter: 2020Q2

REPORT INFORMATION
  Report Type: Spontaneous
  Country: FR (occurrence: FR)
  Receive Date: 20200413
  Receipt Date: 20200413
  Transmission Date: 20200713
  Serious: Yes (Hospitalization)
  Sender: FDA-Public Use
  Company Number: FR-SUN PHARMACEUTICAL INDUSTRIES LTD-2020RR-243805

PATIENT
  Age: 80 Year
  Sex: Female
  Weight: 60 kg

DRUGS (3)
  1. METFORMIN [Suspect]
     Active Substance: METFORMIN HYDROCHLORIDE
     Indication: TYPE 2 DIABETES MELLITUS
     Dosage: 2 GRAM, DAILY
     Route: 048
     Dates: start: 20191112, end: 20191126
  2. SITAGLIPTINE [Suspect]
     Active Substance: SITAGLIPTIN
     Indication: TYPE 2 DIABETES MELLITUS
     Dosage: 100 GRAM, DAILY
     Route: 048
     Dates: start: 20191112, end: 20191126
  3. DIGOXINE [Suspect]
     Active Substance: DIGOXIN
     Indication: CARDIOMYOPATHY
     Dosage: 1.25 MILLIGRAM, WEEKLY
     Route: 048

REACTIONS (6)
  - Orthostatic hypotension [Recovered/Resolved]
  - Overdose [Recovered/Resolved]
  - Lactic acidosis [Recovered/Resolved]
  - Bradycardia [Recovered/Resolved]
  - Cognitive disorder [Recovered/Resolved]
  - Acute kidney injury [Recovered/Resolved]

NARRATIVE: CASE EVENT DATE: 20191126
